FAERS Safety Report 7657345-1 (Version None)
Quarter: 2011Q3

REPORT INFORMATION
  Report Type: 
  Country: None (occurrence: None)
  Receive Date: 20110804
  Receipt Date: 20110802
  Transmission Date: 20111222
  Serious: Yes (Death)
  Sender: FDA-Public Use
  Company Number: PHEH2011US00627

PATIENT
  Age: 64 Year
  Sex: Female
  Weight: 72.5 kg

DRUGS (11)
  1. LAMICTAL [Concomitant]
  2. LEXAPRO [Concomitant]
  3. MIRTAZAPINE [Concomitant]
  4. ENALAPRIL MALEATE [Concomitant]
  5. GLEEVEC [Suspect]
     Indication: CHRONIC MYELOID LEUKAEMIA
     Dosage: 200 MG, UNK
     Route: 048
     Dates: start: 20090301, end: 20090701
  6. BENICAR [Concomitant]
  7. HUMULIN 70/30 [Concomitant]
  8. PROCRIT                            /00909301/ [Concomitant]
  9. LABETALOL HCL [Concomitant]
  10. NIFEDIAC CC [Concomitant]
  11. PROTONIX [Concomitant]

REACTIONS (1)
  - DEATH [None]
